FAERS Safety Report 10997393 (Version 1)
Quarter: 2015Q2

REPORT INFORMATION
  Report Type: Spontaneous
  Country: US (occurrence: None)
  Receive Date: 20150402
  Receipt Date: 20150402
  Transmission Date: 20150821
  Serious: Yes (Other)
  Sender: FDA-Public Use
  Company Number: 201411053

PATIENT
  Age: 54 Year
  Sex: Male

DRUGS (1)
  1. XIAFLEX [Suspect]
     Active Substance: COLLAGENASE CLOSTRIDIUM HISTOLYTICUM
     Indication: PEYRONIE^S DISEASE
     Dosage: INTRALESIONAL
     Dates: start: 2014, end: 2014

REACTIONS (3)
  - Erectile dysfunction [None]
  - Penile haematoma [None]
  - Penile pain [None]

NARRATIVE: CASE EVENT DATE: 20141108
